FAERS Safety Report 6554641-6 (Version None)
Quarter: 2010Q1

REPORT INFORMATION
  Report Type: 
  Country: None (occurrence: None)
  Receive Date: 20100127
  Receipt Date: 20100119
  Transmission Date: 20100710
  Serious: Yes (Other)
  Sender: FDA-Public Use
  Company Number: US-PFIZER INC-2010008255

PATIENT
  Sex: Female
  Weight: 66.678 kg

DRUGS (10)
  1. DETROL LA [Suspect]
     Indication: URINARY INCONTINENCE
     Dosage: 4 MG, UNK
  2. TOVIAZ [Suspect]
     Indication: URINARY INCONTINENCE
     Dosage: 4 MG, 1X/DAY
     Route: 048
     Dates: start: 20091201
  3. FEMHRT [Concomitant]
     Dosage: 0.20 MG, 1X/DAY
  4. CARBAMAZEPINE [Concomitant]
     Dosage: 400 MG, 1X/DAY
  5. PROTONIX [Concomitant]
     Dosage: 40 MG, 1X/DAY
  6. CLONAZEPAM [Concomitant]
     Dosage: FREQUENCY: 2X/DAY,
  7. LIPITOR [Concomitant]
     Dosage: 20 MG, 1X/DAY
  8. PAROXETINE HCL [Concomitant]
     Dosage: 50 MG, 1X/DAY
  9. LEVOTHYROXINE SODIUM [Concomitant]
     Dosage: 50 UG, 1X/DAY
  10. NAPROXEN [Concomitant]
     Dosage: 12.5 MG, 1X/DAY

REACTIONS (2)
  - CYSTITIS [None]
  - RENAL DISORDER [None]
